FAERS Safety Report 12468167 (Version 1)
Quarter: 2016Q2

REPORT INFORMATION
  Report Type: Spontaneous
  Country: FR (occurrence: FR)
  Receive Date: 20160615
  Receipt Date: 20160615
  Transmission Date: 20160815
  Serious: Yes (Life-Threatening)
  Sender: FDA-Public Use
  Company Number: FR-TEVA-666819ISR

PATIENT
  Age: 75 Year
  Sex: Female

DRUGS (15)
  1. MABTHERA [Suspect]
     Active Substance: RITUXIMAB
     Indication: MARGINAL ZONE LYMPHOMA
     Route: 041
     Dates: start: 20160415, end: 20160415
  2. LEVOTHYROX 100 MCG [Concomitant]
  3. AMIKACINE MYLAN [Concomitant]
     Active Substance: AMIKACIN
     Dates: start: 20160416
  4. ENDOXAN [Suspect]
     Active Substance: CYCLOPHOSPHAMIDE
     Indication: MARGINAL ZONE LYMPHOMA
     Route: 042
     Dates: start: 20160415, end: 20160415
  5. XARELTO [Concomitant]
     Active Substance: RIVAROXABAN
  6. AMBISOME [Suspect]
     Active Substance: AMPHOTERICIN B
     Dosage: 180 MILLIGRAM DAILY;
     Route: 042
     Dates: start: 20160415, end: 20160425
  7. VANCOMYCINE SANDOZ [Suspect]
     Active Substance: VANCOMYCIN
     Dosage: 750 MILLIGRAM DAILY;
     Route: 042
     Dates: start: 20160416, end: 20160425
  8. PIPERACILLIN, TAZOBACTAM [Suspect]
     Active Substance: PIPERACILLIN SODIUM\TAZOBACTAM SODIUM
     Dosage: 16 GRAM DAILY;
     Route: 042
     Dates: start: 20160421, end: 20160425
  9. MABTHERA [Suspect]
     Active Substance: RITUXIMAB
     Route: 041
     Dates: start: 20160416, end: 20160416
  10. PENTACARINAT [Concomitant]
     Active Substance: PENTAMIDINE ISETHIONATE
  11. ETOPOSIDE TEVA [Suspect]
     Active Substance: ETOPOSIDE
     Indication: MARGINAL ZONE LYMPHOMA
     Route: 042
     Dates: start: 20160415, end: 20160415
  12. ZOLPIDEM [Concomitant]
     Active Substance: ZOLPIDEM\ZOLPIDEM TARTRATE
  13. MEROPENEM MYLAN [Concomitant]
     Active Substance: MEROPENEM
     Dosage: 2 GRAM DAILY;
     Dates: start: 20160416, end: 20160420
  14. ZELITREX 500 MG [Concomitant]
     Active Substance: VALACYCLOVIR HYDROCHLORIDE
     Dosage: 1000 MILLIGRAM DAILY;
  15. GAVISCON [Concomitant]
     Active Substance: ALUMINUM HYDROXIDE\MAGNESIUM CARBONATE

REACTIONS (1)
  - Atrioventricular block complete [Recovered/Resolved]

NARRATIVE: CASE EVENT DATE: 20160422
